FAERS Safety Report 7901873-8 (Version None)
Quarter: 2011Q4

REPORT INFORMATION
  Report Type: 
  Country: None (occurrence: None)
  Receive Date: 20111108
  Receipt Date: 20111103
  Transmission Date: 20120403
  Serious: Yes (Other)
  Sender: FDA-Public Use
  Company Number: US-TEVA-308071USA

PATIENT
  Sex: Female

DRUGS (2)
  1. LORAZEPAM [Interacting]
  2. PAROXETINE HCL [Suspect]

REACTIONS (9)
  - HOMICIDE [None]
  - STAB WOUND [None]
  - ANXIETY [None]
  - AGGRESSION [None]
  - SOMNAMBULISM [None]
  - DEPRESSION [None]
  - DRUG INTERACTION [None]
  - AKATHISIA [None]
  - SELF INJURIOUS BEHAVIOUR [None]
